FAERS Safety Report 13108546 (Version 1)
Quarter: 2017Q1

REPORT INFORMATION
  Report Type: Spontaneous
  Country: US (occurrence: US)
  Receive Date: 20170112
  Receipt Date: 20170112
  Transmission Date: 20170428
  Serious: Yes (Death)
  Sender: FDA-Public Use
  Company Number: US-JNJFOC-20170106959

PATIENT
  Age: 38 Year
  Sex: Female
  Weight: 46.27 kg

DRUGS (1)
  1. LISTERINE ORIGINAL [Suspect]
     Active Substance: EUCALYPTOL\MENTHOL\METHYL SALICYLATE\THYMOL
     Indication: PRODUCT USED FOR UNKNOWN INDICATION
     Dosage: SMALL CONSUMPTION
     Route: 048

REACTIONS (3)
  - Drug abuse [Fatal]
  - Completed suicide [Fatal]
  - Accident [Fatal]
